FAERS Safety Report 4964500-8 (Version None)
Quarter: 2006Q1

REPORT INFORMATION
  Report Type: 
  Country: None (occurrence: None)
  Receive Date: 20060331
  Receipt Date: 20060324
  Transmission Date: 20060701
  Serious: Yes (Death, Hospitalization)
  Sender: FDA-Public Use
  Company Number: 200610235BFR

PATIENT
  Age: 63 Year
  Sex: Male

DRUGS (4)
  1. MOXIFLOXACIN HYDROCHLORIDE [Suspect]
     Indication: BRONCHITIS
     Dosage: 400 MG, ORAL
     Route: 048
     Dates: end: 20060131
  2. CORDARONE [Suspect]
     Dosage: ORAL
     Route: 048
     Dates: end: 20060131
  3. FUNGIZONE [Suspect]
     Dosage: ORAL
     Route: 048
     Dates: end: 20060131
  4. PREVISCAN                 (FLUINDIONE) [Suspect]
     Dosage: ORAL
     Route: 048
     Dates: end: 20060131

REACTIONS (5)
  - ATRIAL FIBRILLATION [None]
  - GENERAL PHYSICAL HEALTH DETERIORATION [None]
  - PATHOGEN RESISTANCE [None]
  - STEVENS-JOHNSON SYNDROME [None]
  - TOXIC EPIDERMAL NECROLYSIS [None]
